FAERS Safety Report 6493742-8 (Version None)
Quarter: 2009Q4

REPORT INFORMATION
  Report Type: 
  Country: None (occurrence: None)
  Receive Date: 20091214
  Receipt Date: 20090420
  Transmission Date: 20100525
  Serious: No
  Sender: FDA-Public Use
  Company Number: US-BRISTOL-MYERS SQUIBB COMPANY-13962824

PATIENT
  Age: 38 Year
  Sex: Male
  Weight: 91 kg

DRUGS (6)
  1. ABILIFY [Suspect]
     Indication: BIPOLAR DISORDER
  2. AVANDIA [Concomitant]
  3. ANAPRIL [Concomitant]
  4. METFORMIN [Concomitant]
  5. PLENDIL [Concomitant]
  6. COGENTIN [Concomitant]

REACTIONS (6)
  - DYSARTHRIA [None]
  - HEADACHE [None]
  - HYPOAESTHESIA FACIAL [None]
  - MASTICATION DISORDER [None]
  - MUSCULAR WEAKNESS [None]
  - PARAESTHESIA [None]
